FAERS Safety Report 9737400 (Version 5)
Quarter: 2014Q2

REPORT INFORMATION
  Report Type: Report from Study
  Country: ES (occurrence: ES)
  Receive Date: 20131206
  Receipt Date: 20140530
  Transmission Date: 20141212
  Serious: Yes (Hospitalization)
  Sender: FDA-Public Use
  Company Number: ES-B.I. PHARMACEUTICALS,INC./RIDGEFIELD-2013-BI-05405BI

PATIENT
  Age: 62 Year
  Sex: Female
  Weight: 60 kg

DRUGS (10)
  1. BIBW 2992 [Suspect]
     Indication: LUNG ADENOCARCINOMA
     Dosage: 40 MG
     Route: 048
     Dates: start: 20130213, end: 20130224
  2. BIBW 2992 [Suspect]
     Dosage: 30 MG
     Route: 048
     Dates: start: 20130304
  3. ACETIL CISTEINE [Concomitant]
     Indication: COUGH
     Dosage: 600 MG
     Route: 048
     Dates: start: 20121206
  4. PARACETAMOL [Concomitant]
     Indication: PAIN
     Dosage: 3 G
     Route: 048
     Dates: start: 20121206
  5. IBUPROFEN [Concomitant]
     Indication: PAIN
     Dosage: 1.8 G
     Route: 048
     Dates: start: 20121206
  6. OMEPRAZOL [Concomitant]
     Indication: PROPHYLAXIS
     Dosage: 20 MG
     Route: 048
     Dates: start: 20121115
  7. ATORVASTATINA [Concomitant]
     Indication: DYSLIPIDAEMIA
     Dosage: 10 MG
     Route: 048
     Dates: start: 20121115
  8. FLUVASTATINA [Concomitant]
     Indication: DYSLIPIDAEMIA
     Dosage: 20 MG
     Route: 048
     Dates: start: 20121013
  9. PRIMPERAN [Concomitant]
     Indication: PROPHYLAXIS
     Dosage: 10 MG
     Route: 042
     Dates: start: 20130225, end: 20130225
  10. NOLOTIL [Concomitant]
     Indication: PAIN
     Dosage: DAILY DOSE -575
     Route: 048
     Dates: start: 20130207

REACTIONS (2)
  - Diarrhoea [Recovered/Resolved]
  - Asthenia [Recovered/Resolved]
